FAERS Safety Report 10332379 (Version 2)
Quarter: 2014Q4

REPORT INFORMATION
  Report Type: Spontaneous
  Country: IT (occurrence: IT)
  Receive Date: 20140722
  Receipt Date: 20141019
  Transmission Date: 20150528
  Serious: Yes (Hospitalization, Other)
  Sender: FDA-Public Use
  Company Number: IT-BRISTOL-MYERS SQUIBB COMPANY-21203849

PATIENT
  Age: 89 Year
  Sex: Male

DRUGS (6)
  1. COUMADIN [Suspect]
     Active Substance: WARFARIN SODIUM
     Indication: ATRIAL FIBRILLATION
     Dosage: INTER:10OCT2013?1DF:1 UNIT
     Route: 048
     Dates: start: 20100401
  2. TEGRETOL [Concomitant]
     Active Substance: CARBAMAZEPINE
     Dosage: STREN:TEGRETOL 200 MG TABS
  3. CARDIRENE [Suspect]
     Active Substance: ASPIRIN DL-LYSINE
     Indication: CORONARY ANGIOPLASTY
     Dosage: 1DF:1 UNIT OF CARDIRENE 160 MG ORAL SOLUTION
     Route: 048
     Dates: start: 20080901, end: 20131010
  4. PERINDOPRIL [Concomitant]
     Active Substance: PERINDOPRIL
     Dosage: COVERLAM 5 MG TABS
  5. AMLODIPINE [Concomitant]
     Active Substance: AMLODIPINE BESYLATE
     Dosage: COVERLAM 5 MG TABS
  6. SELOKEN [Concomitant]
     Active Substance: METOPROLOL
     Dosage: STREN:100 MG TABS

REACTIONS (2)
  - Cerebral haemorrhage [Recovering/Resolving]
  - Head injury [Unknown]

NARRATIVE: CASE EVENT DATE: 20140710
